FAERS Safety Report 8067668-2 (Version None)
Quarter: 2012Q1

REPORT INFORMATION
  Report Type: 
  Country: None (occurrence: None)
  Receive Date: 20120124
  Receipt Date: 20120119
  Transmission Date: 20120608
  Serious: Yes (Hospitalization, Other)
  Sender: FDA-Public Use
  Company Number: US-ELI_LILLY_AND_COMPANY-US201107006679

PATIENT
  Sex: Female
  Weight: 129.3 kg

DRUGS (24)
  1. NASACORT [Concomitant]
     Dosage: 2 DF, QD
  2. AMITRIPTYLINE HCL [Concomitant]
     Dosage: 20 MG, EACH EVENING
  3. CLONIDINE [Concomitant]
     Dosage: 0.2 MG, BID
  4. SINGULAIR [Concomitant]
     Dosage: 10 MG, QD
  5. BYETTA [Suspect]
     Dosage: 10 UG, BID
     Dates: start: 20060101
  6. LASIX [Concomitant]
     Dosage: 80 MG, BID
  7. HYDROXYZINE [Concomitant]
     Dosage: 25 MG, TID
  8. LIPITOR [Concomitant]
     Dosage: 40 MG, QD
  9. AMBIEN [Concomitant]
     Dosage: 10 MG, PRN
  10. PROZAC [Concomitant]
     Dosage: 60 MG, QD
  11. LANTUS [Concomitant]
     Dosage: 60 U, UNK
  12. LYRICA [Concomitant]
     Dosage: 100 MG, TID
  13. CLARINEX [Concomitant]
     Dosage: 1 DF, QD
  14. ALBUTEROL [Concomitant]
     Dosage: UNK, PRN
  15. HUMULIN R [Concomitant]
     Dosage: 28 UNK, UNK
  16. HYZAAR [Concomitant]
     Dosage: UNK
  17. DICYCLOMINE [Concomitant]
     Dosage: 10 MG, QID
  18. TOPROL-XL [Concomitant]
     Dosage: 50 MG, QD
  19. NEXIUM [Concomitant]
     Dosage: 40 MG, QD
  20. LISINOPRIL [Concomitant]
     Dosage: 40 MG, BID
  21. PLAVIX [Concomitant]
     Dosage: 75 MG, QD
  22. NITROGLYCERIN [Concomitant]
     Dosage: 0.4 MG, EVERY HOUR
  23. KLOR-CON [Concomitant]
     Dosage: 20 MEQ, BID
  24. DARVOCET [Concomitant]
     Dosage: UNK, PRN

REACTIONS (3)
  - PANCREATITIS [None]
  - OFF LABEL USE [None]
  - CHOLELITHIASIS [None]
